FAERS Safety Report 8080794-7 (Version None)
Quarter: 2012Q1

REPORT INFORMATION
  Report Type: 
  Country: None (occurrence: None)
  Receive Date: 20120130
  Receipt Date: 20120124
  Transmission Date: 20120608
  Serious: Yes (Hospitalization)
  Sender: FDA-Public Use
  Company Number: JP-JNJFOC-20120111959

PATIENT

DRUGS (1)
  1. DORIPENEM MONOHYDRATE [Suspect]
     Indication: INFECTION
     Route: 042
     Dates: start: 20120101, end: 20120101

REACTIONS (1)
  - ACIDOSIS [None]
